FAERS Safety Report 5803493 (Version 7)
Quarter: 2012Q4

REPORT INFORMATION
  Report Type: Report from Study
  Country: JP (occurrence: JP)
  Receive Date: 20050525
  Receipt Date: 20121221
  Transmission Date: 20130627
  Serious: Yes (Hospitalization)
  Sender: FDA-Public Use
  Company Number: JP-ABBOTT-01P-087-0112984-00

PATIENT
  Age: 34 Year
  Sex: Male

DRUGS (28)
  1. NORVIR SOFT GELATIN CAPSULES [Suspect]
     Indication: HIV INFECTION
     Dates: start: 19991101, end: 20001108
  2. NORVIR SOFT GELATIN CAPSULES [Suspect]
     Dates: start: 20001116, end: 20040408
  3. NORVIR SOFT GELATIN CAPSULES [Suspect]
     Dates: start: 20040409, end: 20070607
  4. KALETRA TABLETS [Suspect]
     Indication: HIV INFECTION
     Route: 048
     Dates: start: 20070608, end: 20070625
  5. KALETRA TABLETS [Suspect]
     Route: 048
     Dates: start: 20070626
  6. KALETRA TABLETS [Suspect]
  7. LAMIVUDINE [Suspect]
     Indication: HIV INFECTION
     Route: 048
     Dates: end: 199910
  8. STAVUDINE [Suspect]
     Indication: HIV INFECTION
     Route: 048
     Dates: end: 199910
  9. SAQUINAVIR [Suspect]
     Indication: HIV INFECTION
     Route: 048
     Dates: end: 199910
  10. ABACAVIR SULFATE [Suspect]
     Indication: HIV INFECTION
     Route: 048
     Dates: start: 199910, end: 20001108
  11. ABACAVIR SULFATE [Suspect]
     Route: 048
     Dates: start: 20011101, end: 20021108
  12. ABACAVIR SULFATE [Suspect]
     Route: 048
     Dates: start: 20021116, end: 20070316
  13. AMPRENAVIR [Suspect]
     Indication: HIV INFECTION
     Route: 048
     Dates: start: 19991101, end: 20001108
  14. AMPRENAVIR [Suspect]
     Route: 048
     Dates: start: 20001116, end: 20040311
  15. EFAVIRENZ [Suspect]
     Indication: HIV INFECTION
     Route: 048
     Dates: start: 199910, end: 20001108
  16. EFAVIRENZ [Suspect]
     Route: 048
     Dates: start: 20011101, end: 20021108
  17. EFAVIRENZ [Suspect]
     Route: 048
     Dates: start: 20021116, end: 20070316
  18. EFAVIRENZ [Suspect]
     Route: 048
  19. REYATAZ [Suspect]
     Indication: HIV INFECTION
     Dosage: 150MG DAILY
     Dates: start: 20040312, end: 20040408
  20. REYATAZ [Suspect]
     Route: 048
     Dates: start: 20040409, end: 20070607
  21. SULFAMETHOXAZOLE W/TRIMETHOPRIM [Concomitant]
     Indication: ANTIFUNGAL PROPHYLAXIS
     Route: 048
     Dates: start: 19991101, end: 20001108
  22. SULFAMETHOXAZOLE W/TRIMETHOPRIM [Concomitant]
     Route: 048
  23. ALLOPURINOL [Concomitant]
     Indication: HYPERURICAEMIA
     Route: 048
     Dates: start: 19991101, end: 20001108
  24. ALLOPURINOL [Concomitant]
     Route: 048
     Dates: start: 20001116, end: 20040905
  25. AZITHROMYCIN HYDRATE [Concomitant]
     Indication: BACTERIAL INFECTION
     Route: 048
     Dates: start: 19991101, end: 20000712
  26. RANITIDINE [Concomitant]
     Indication: PROPHYLAXIS AGAINST GASTROINTESTINAL ULCER
     Dates: start: 20020723, end: 20040806
  27. ABACAVIR W/LAMIVUDINE [Concomitant]
     Indication: HIV INFECTION
     Route: 048
     Dates: start: 20070317, end: 20070607
  28. EMTRICITABINE W/TENOFOVIR [Concomitant]
     Indication: PRODUCT USED FOR UNKNOWN INDICATION

REACTIONS (4)
  - Lymphoma [Recovering/Resolving]
  - Hyperlipidaemia [Not Recovered/Not Resolved]
  - Hepatic steatosis [Recovering/Resolving]
  - Gamma-glutamyltransferase increased [Recovering/Resolving]
